FAERS Safety Report 21404969 (Version 7)
Quarter: 2023Q2

REPORT INFORMATION
  Report Type: Report from Study
  Country: US (occurrence: US)
  Receive Date: 20221003
  Receipt Date: 20230626
  Transmission Date: 20230722
  Serious: No
  Sender: FDA-Public Use
  Company Number: US-NOVARTISTESTPH-NVSC2022US221548

PATIENT
  Age: 61 Year
  Sex: Female

DRUGS (1)
  1. KESIMPTA [Suspect]
     Active Substance: OFATUMUMAB
     Indication: Product used for unknown indication
     Dosage: 20 MG, QMO
     Route: 058
     Dates: start: 20220831

REACTIONS (5)
  - Fatigue [Unknown]
  - Weight increased [Unknown]
  - Balance disorder [Unknown]
  - Memory impairment [Unknown]
  - Fall [Unknown]

NARRATIVE: CASE EVENT DATE: 20220910
